FAERS Safety Report 11630081 (Version 1)
Quarter: 2015Q4

REPORT INFORMATION
  Report Type: Other
  Country: JP (occurrence: JP)
  Receive Date: 20151014
  Receipt Date: 20151014
  Transmission Date: 20160304
  Serious: Yes (Hospitalization, Disabling)
  Sender: FDA-Public Use
  Company Number: JP-WARNER CHILCOTT-2015-001618

PATIENT
  Age: 73 Year
  Sex: Female

DRUGS (2)
  1. DIDRONEL [Suspect]
     Active Substance: ETIDRONATE DISODIUM
     Indication: OSTEOPOROSIS
     Route: 048
     Dates: start: 200601, end: 200711
  2. FOSAMAC [Suspect]
     Active Substance: ALENDRONATE SODIUM
     Route: 048
     Dates: start: 200203, end: 200504

REACTIONS (11)
  - Actinomycosis [None]
  - Nasal obstruction [None]
  - Gingival swelling [None]
  - Purulent discharge [None]
  - Primary sequestrum [None]
  - Exposed bone in jaw [None]
  - Inflammation [None]
  - Sinusitis [None]
  - Bone disorder [None]
  - Osteomyelitis [None]
  - Bacterial infection [None]
